FAERS Safety Report 4767555-9 (Version None)
Quarter: 2005Q3

REPORT INFORMATION
  Report Type: 
  Country: None (occurrence: None)
  Receive Date: 20050913
  Receipt Date: 20050907
  Transmission Date: 20060218
  Serious: Yes (Death)
  Sender: FDA-Public Use
  Company Number: US-JNJFOC-20050902011

PATIENT
  Age: 55 Year
  Sex: Female

DRUGS (6)
  1. CYCLOBENZAPRINE HCL [Suspect]
     Indication: SUICIDE ATTEMPT
     Route: 048
  2. ACETAMINOPHEN/PROPOXYPHENE [Suspect]
     Route: 048
  3. ACETAMINOPHEN/PROPOXYPHENE [Suspect]
     Indication: SUICIDE ATTEMPT
     Route: 048
  4. BUPROPION (LONG-ACTING) [Suspect]
     Indication: SUICIDE ATTEMPT
     Route: 048
  5. SIMVASTATIN [Suspect]
     Indication: SUICIDE ATTEMPT
     Route: 048
  6. ESTROGEN [Suspect]
     Indication: SUICIDE ATTEMPT
     Route: 048

REACTIONS (14)
  - BRADYCARDIA [None]
  - COMPLETED SUICIDE [None]
  - DEPRESSED LEVEL OF CONSCIOUSNESS [None]
  - DYSARTHRIA [None]
  - ELECTROCARDIOGRAM QT CORRECTED INTERVAL PROLONGED [None]
  - INTENTIONAL MISUSE [None]
  - LABILE BLOOD PRESSURE [None]
  - METABOLIC ACIDOSIS [None]
  - OVERDOSE [None]
  - RESPIRATORY DEPRESSION [None]
  - RESPIRATORY RATE INCREASED [None]
  - SOMNOLENCE [None]
  - URINE OUTPUT DECREASED [None]
  - VOMITING [None]
